FAERS Safety Report 25045299 (Version 1)
Quarter: 2025Q1

REPORT INFORMATION
  Report Type: Spontaneous
  Country: US (occurrence: None)
  Receive Date: 20250305
  Receipt Date: 20250305
  Transmission Date: 20250409
  Serious: Yes (Hospitalization)
  Sender: FDA-CTU
  Company Number: None

PATIENT
  Sex: Male

DRUGS (11)
  1. TRIKAFTA [Suspect]
     Active Substance: ELEXACAFTOR\IVACAFTOR\TEZACAFTOR
     Indication: Cystic fibrosis
     Dates: start: 20200416
  2. ALBUTEROL TAB2MG [Concomitant]
  3. AZITHROMYCIN [Concomitant]
     Active Substance: AZITHROMYCIN
  4. BASAGLAR INJ 100UNIT [Concomitant]
  5. BENZTROPINE TAB 0.5MG [Concomitant]
  6. BETHKIS NEB 300/4ML [Concomitant]
  7. BUDESONIDE SUS 1 MG/2ML [Concomitant]
  8. CREON CAP 24000UNT [Concomitant]
  9. DEKAS PLUS LIQ [Concomitant]
  10. ELIQUIS [Concomitant]
     Active Substance: APIXABAN
  11. HUMALOG JR INJ 100/ML [Concomitant]

REACTIONS (7)
  - Dyspnoea [None]
  - Dyspnoea [None]
  - Wheezing [None]
  - Sleep disorder [None]
  - Fatigue [None]
  - Fatigue [None]
  - Pain [None]
